FAERS Safety Report 22188726 (Version 1)
Quarter: 2023Q2

REPORT INFORMATION
  Report Type: Spontaneous
  Country: US (occurrence: US)
  Receive Date: 20230409
  Receipt Date: 20230409
  Transmission Date: 20230722
  Serious: No
  Sender: FDA-Public Use
  Company Number: US-SA-SAC20230404001490

PATIENT
  Age: 71 Year
  Sex: Female

DRUGS (18)
  1. KEVZARA [Suspect]
     Active Substance: SARILUMAB
     Indication: Rheumatoid arthritis
     Dosage: 200 MG, QOW
     Route: 058
     Dates: start: 20220803
  2. CALCIUM [Concomitant]
     Active Substance: CALCIUM
     Dosage: 250 MG
  3. COLLAGEN [Concomitant]
     Active Substance: COLLAGEN
     Dosage: 60 MG
  4. DULOXETINE [Concomitant]
     Active Substance: DULOXETINE
     Dosage: 1 MG
  5. ESTRADIOL [Concomitant]
     Active Substance: ESTRADIOL
     Dosage: 5 MG
  6. LISINOPRIL [Concomitant]
     Active Substance: LISINOPRIL
     Dosage: 250 MG
  7. MAGNESIUM [Concomitant]
     Active Substance: MAGNESIUM
     Dosage: 500 MG
  8. ZINC [Concomitant]
     Active Substance: ZINC
     Dosage: 10 MG
  9. FOLIC ACID [Concomitant]
     Active Substance: FOLIC ACID
     Dosage: 40 MG
  10. METHOTREXATE [Concomitant]
     Active Substance: METHOTREXATE
     Dosage: 045 MG
  11. OMEPRAZOLE [Concomitant]
     Active Substance: OMEPRAZOLE
     Dosage: 045 MG
  12. PREMARIN [Concomitant]
     Active Substance: ESTROGENS, CONJUGATED
     Dosage: 0.4 MG
  13. GARLIC PEARLS [Concomitant]
     Dosage: UNK
  14. LEVOCETIRIZINE DIHYDROCHLORIDE [Concomitant]
     Active Substance: LEVOCETIRIZINE DIHYDROCHLORIDE
     Dosage: UNK
  15. VITAMIN A [Concomitant]
     Active Substance: VITAMIN A
     Dosage: UNK
  16. VITAMIN C [Concomitant]
     Active Substance: ASCORBIC ACID
     Dosage: UNK
  17. .ALPHA.-TOCOPHEROL [Concomitant]
     Active Substance: .ALPHA.-TOCOPHEROL
     Dosage: UNK
  18. DICYCLOMINE HYDROCHLORIDE [Concomitant]
     Active Substance: DICYCLOMINE HYDROCHLORIDE

REACTIONS (2)
  - Pyrexia [Recovered/Resolved]
  - Malaise [Recovered/Resolved]
